FAERS Safety Report 12162196 (Version 1)
Quarter: 2016Q1

REPORT INFORMATION
  Report Type: Spontaneous
  Country: US (occurrence: None)
  Receive Date: 20160307
  Receipt Date: 20160307
  Transmission Date: 20160526
  Serious: Yes (Life-Threatening, Hospitalization)
  Sender: FDA-Public Use
  Company Number: None

PATIENT
  Age: 39 Year
  Sex: Male

DRUGS (1)
  1. DIPHENHYDRAMINE 50MG EQUATE [Suspect]
     Active Substance: DIPHENHYDRAMINE
     Indication: THINKING ABNORMAL
     Route: 048

REACTIONS (2)
  - Hepatic failure [None]
  - Cardiac disorder [None]

NARRATIVE: CASE EVENT DATE: 20151231
